FAERS Safety Report 7781667-7 (Version None)
Quarter: 2011Q3

REPORT INFORMATION
  Report Type: 
  Country: None (occurrence: None)
  Receive Date: 20110927
  Receipt Date: 20110518
  Transmission Date: 20111222
  Serious: No
  Sender: FDA-Public Use
  Company Number: US-BAYER-2011-044063

PATIENT
  Age: 83 Year
  Sex: Female
  Weight: 73 kg

DRUGS (5)
  1. MULTI-VITAMIN [Concomitant]
  2. ASPIRIN [Concomitant]
     Dosage: 81 MG
  3. ALEVE (CAPLET) [Suspect]
     Indication: ANALGESIC THERAPY
     Dosage: 2 TABS TWICE PER DAY
     Route: 048
  4. COD LIVER OIL [Concomitant]
  5. ATENOLOL [Concomitant]

REACTIONS (1)
  - NO ADVERSE EVENT [None]
